FAERS Safety Report 10996365 (Version 1)
Quarter: 2015Q2

REPORT INFORMATION
  Report Type: Spontaneous
  Country: CA (occurrence: CA)
  Receive Date: 20150408
  Receipt Date: 20150408
  Transmission Date: 20150821
  Serious: Yes (Life-Threatening, Hospitalization)
  Sender: FDA-Public Use
  Company Number: CA-ABBVIE-15K-028-1372635-00

PATIENT
  Sex: Male

DRUGS (3)
  1. TYLENOL WITH CODEINE NO.3 [Concomitant]
     Active Substance: ACETAMINOPHEN\CODEINE PHOSPHATE
     Indication: PRODUCT USED FOR UNKNOWN INDICATION
  2. METHOTREXATE [Concomitant]
     Active Substance: METHOTREXATE
     Indication: PRODUCT USED FOR UNKNOWN INDICATION
  3. HUMIRA [Suspect]
     Active Substance: ADALIMUMAB
     Indication: PSORIATIC ARTHROPATHY
     Route: 058

REACTIONS (12)
  - Injection site reaction [Not Recovered/Not Resolved]
  - Osteoporosis [Not Recovered/Not Resolved]
  - Diabetes mellitus [Not Recovered/Not Resolved]
  - Hyperhidrosis [Not Recovered/Not Resolved]
  - Secretion discharge [Not Recovered/Not Resolved]
  - Dry mouth [Not Recovered/Not Resolved]
  - Skin reaction [Not Recovered/Not Resolved]
  - Purulent discharge [Not Recovered/Not Resolved]
  - Headache [Not Recovered/Not Resolved]
  - Skin discolouration [Not Recovered/Not Resolved]
  - Gangrene [Not Recovered/Not Resolved]
  - Abdominal pain [Not Recovered/Not Resolved]
